FAERS Safety Report 18502168 (Version 3)
Quarter: 2023Q2

REPORT INFORMATION
  Report Type: Report from Study
  Country: IL (occurrence: IL)
  Receive Date: 20201113
  Receipt Date: 20230524
  Transmission Date: 20230722
  Serious: Yes (Death, Hospitalization, Other)
  Sender: FDA-Public Use
  Company Number: IL-TAKEDA-IL202022649

PATIENT
  Age: 2 Year
  Sex: Male

DRUGS (12)
  1. VELAGLUCERASE ALFA [Suspect]
     Active Substance: VELAGLUCERASE ALFA
     Indication: Gaucher^s disease
     Dosage: 67 INTERNATIONAL UNIT/KILOGRAM, Q2WEEKS
     Route: 065
     Dates: start: 20190813
  2. VENOFER [Concomitant]
     Active Substance: IRON SUCROSE
     Indication: Anaemia
     Dosage: 50 MILLIGRAM, SINGLE
     Route: 042
     Dates: start: 20190813, end: 20190813
  3. Aerovent [Concomitant]
     Indication: Dyspnoea
     Dosage: 0.5 MILLILITER, BID
     Route: 055
     Dates: start: 20191206, end: 20200121
  4. Aerovent [Concomitant]
     Indication: Influenza
     Dosage: 0.5 MILLILITER, TID
     Route: 055
     Dates: start: 20200122
  5. TAMIFLU [Concomitant]
     Active Substance: OSELTAMIVIR PHOSPHATE
     Indication: Influenza
     Dosage: UNK UNK, QD
     Route: 065
     Dates: start: 20200115, end: 20200120
  6. SODIUM CHLORIDE [Concomitant]
     Active Substance: SODIUM CHLORIDE
     Dosage: 4 MILLILITER, QD
     Route: 065
     Dates: start: 20200207
  7. AMOXICILLIN\CLAVULANATE POTASSIUM [Concomitant]
     Active Substance: AMOXICILLIN\CLAVULANATE POTASSIUM
     Dosage: 170 MILLIGRAM, BID
     Route: 048
     Dates: start: 20200207, end: 20200214
  8. AUGMENTIN [Concomitant]
     Active Substance: AMOXICILLIN\CLAVULANATE POTASSIUM
     Dosage: 200 MILLIGRAM, BID
     Route: 048
     Dates: start: 20200217, end: 20200223
  9. KEPPRA [Concomitant]
     Active Substance: LEVETIRACETAM
     Dosage: 85 MILLIGRAM, BID
     Route: 065
     Dates: start: 20200217, end: 20200224
  10. KEPPRA [Concomitant]
     Active Substance: LEVETIRACETAM
     Dosage: 125 MILLIGRAM, BID
     Route: 065
     Dates: start: 20200224, end: 20200302
  11. KEPPRA [Concomitant]
     Active Substance: LEVETIRACETAM
     Dosage: 170 MILLIGRAM, BID
     Route: 065
     Dates: start: 20200302
  12. MIDAZOLAM [Concomitant]
     Active Substance: MIDAZOLAM
     Indication: Seizure
     Dosage: UNK UNK, SINGLE
     Route: 065
     Dates: start: 20201004, end: 20201004

REACTIONS (3)
  - Gaucher^s disease [Fatal]
  - Pneumonia [Recovered/Resolved]
  - Gastroenteritis [Recovered/Resolved]

NARRATIVE: CASE EVENT DATE: 20200712
